FAERS Safety Report 14169617 (Version 1)
Quarter: 2017Q4

REPORT INFORMATION
  Report Type: Spontaneous
  Country: CA (occurrence: CA)
  Receive Date: 20171108
  Receipt Date: 20171108
  Transmission Date: 20180321
  Serious: No
  Sender: FDA-Public Use
  Company Number: CA-ROCHE-2012674

PATIENT
  Sex: Female
  Weight: 48 kg

DRUGS (3)
  1. METHYLPREDNISOLONE. [Concomitant]
     Active Substance: METHYLPREDNISOLONE
     Dosage: IV IN 50 ML NACL 0.9%
     Route: 042
     Dates: start: 20171011
  2. OCREVUS [Suspect]
     Active Substance: OCRELIZUMAB
     Indication: PRODUCT USED FOR UNKNOWN INDICATION
     Route: 042
     Dates: start: 20171011
  3. BENADRYL [Suspect]
     Active Substance: DIPHENHYDRAMINE HYDROCHLORIDE
     Indication: PREMEDICATION
     Route: 048
     Dates: start: 20171011

REACTIONS (8)
  - Blood pressure decreased [Recovering/Resolving]
  - Dizziness [Recovered/Resolved]
  - Body temperature increased [Unknown]
  - Adverse drug reaction [Unknown]
  - Fatigue [Recovered/Resolved]
  - Vulvovaginal candidiasis [Unknown]
  - Nausea [Recovered/Resolved]
  - Heart rate decreased [Recovering/Resolving]

NARRATIVE: CASE EVENT DATE: 20171012
